FAERS Safety Report 20141948 (Version 1)
Quarter: 2021Q4

REPORT INFORMATION
  Report Type: Report from Study
  Country: FR (occurrence: FR)
  Receive Date: 20211202
  Receipt Date: 20211202
  Transmission Date: 20220303
  Serious: Yes (Other)
  Sender: FDA-Public Use
  Company Number: FR-GLAXOSMITHKLINE-FR2020EME145873

PATIENT
  Age: 54 Year
  Sex: Male
  Weight: 85 kg

DRUGS (7)
  1. ALBUTEROL [Suspect]
     Active Substance: ALBUTEROL
     Indication: Myelopathy
     Dosage: 2 MILLIGRAM (2 MG X3)
     Route: 048
     Dates: start: 20190101, end: 20190930
  2. ALBUTEROL [Suspect]
     Active Substance: ALBUTEROL
     Indication: Amyotrophy
  3. METFORMIN [Concomitant]
     Active Substance: METFORMIN HYDROCHLORIDE
     Dosage: UNK
  4. PLAVIX [Concomitant]
     Active Substance: CLOPIDOGREL BISULFATE
     Dosage: UNK
  5. IXPRIM [Concomitant]
     Active Substance: ACETAMINOPHEN\TRAMADOL HYDROCHLORIDE
     Indication: Pain
     Dosage: UNK (2 TABLET)
     Route: 048
  6. COVERSYL                           /00790702/ [Concomitant]
     Dosage: UNK
  7. MOPRAL                             /00661201/ [Concomitant]
     Dosage: UNK

REACTIONS (2)
  - Diabetes mellitus [Recovered/Resolved]
  - Off label use [Unknown]

NARRATIVE: CASE EVENT DATE: 20190101
